FAERS Safety Report 7563739-5 (Version None)
Quarter: 2011Q2

REPORT INFORMATION
  Report Type: 
  Country: None (occurrence: None)
  Receive Date: 20110622
  Receipt Date: 20110616
  Transmission Date: 20111010
  Serious: Yes (Hospitalization, Other)
  Sender: FDA-Public Use
  Company Number: GB-MERCK-1106GBR00036

PATIENT
  Age: 61 Year
  Sex: Male

DRUGS (6)
  1. DIPYRIDAMOLE [Concomitant]
     Route: 065
  2. ZOCOR [Suspect]
     Route: 048
  3. CLOPIDOGREL BISULFATE [Suspect]
     Route: 065
  4. PENICILLIN V [Suspect]
     Route: 065
  5. ASPIRIN [Concomitant]
     Route: 065
  6. OMEPRAZOLE [Suspect]
     Route: 065

REACTIONS (24)
  - HEADACHE [None]
  - PALLOR [None]
  - CHROMATURIA [None]
  - COORDINATION ABNORMAL [None]
  - DRY SKIN [None]
  - HEPATOTOXICITY [None]
  - RESTLESSNESS [None]
  - WEIGHT DECREASED [None]
  - BLOOD BILIRUBIN INCREASED [None]
  - DECREASED APPETITE [None]
  - GAIT DISTURBANCE [None]
  - GAMMA-GLUTAMYLTRANSFERASE INCREASED [None]
  - MONOCYTOSIS [None]
  - TRANSIENT ISCHAEMIC ATTACK [None]
  - VOMITING [None]
  - PYREXIA [None]
  - BLOOD ALKALINE PHOSPHATASE INCREASED [None]
  - ABDOMINAL PAIN UPPER [None]
  - LIVEDO RETICULARIS [None]
  - SLEEP DISORDER [None]
  - JAUNDICE [None]
  - ALANINE AMINOTRANSFERASE INCREASED [None]
  - EPIGASTRIC DISCOMFORT [None]
  - HEPATITIS E [None]
